FAERS Safety Report 9390929 (Version 2)
Quarter: 2013Q3

REPORT INFORMATION
  Report Type: Spontaneous
  Country: FR (occurrence: None)
  Receive Date: 20130705
  Receipt Date: 20130710
  Transmission Date: 20140515
  Serious: Yes (Death, Hospitalization, Other)
  Sender: FDA-Public Use
  Company Number: 2013MPI00275

PATIENT
  Age: 58 Year
  Sex: Male

DRUGS (4)
  1. BRENTUXIMAB VEDOTIN [Suspect]
     Indication: HODGKIN^S DISEASE REFRACTORY
     Dosage: 1.8 MG/KG, Q21D, INTRAVENOUS
     Route: 042
     Dates: start: 20130209, end: 20130527
  2. POLARAMINE [Concomitant]
  3. PANTOPRAZOLE (PANTOPRAZOLE) [Concomitant]
  4. CETIRIZINE (CETIRIZINE) [Concomitant]

REACTIONS (3)
  - Toxic shock syndrome staphylococcal [None]
  - Disease progression [None]
  - Bursitis infective [None]
